FAERS Safety Report 7735316-4 (Version None)
Quarter: 2011Q3

REPORT INFORMATION
  Report Type: 
  Country: None (occurrence: None)
  Receive Date: 20110907
  Receipt Date: 20110829
  Transmission Date: 20111222
  Serious: Yes (Other)
  Sender: FDA-Public Use
  Company Number: JP-ASTRAZENECA-2011SE53223

PATIENT
  Age: 68 Year
  Sex: Female

DRUGS (6)
  1. SEROQUEL [Suspect]
     Indication: ANXIETY
     Dosage: DAILY
     Route: 048
  2. SEROQUEL [Suspect]
     Indication: DEPRESSION
     Dosage: DAILY
     Route: 048
  3. RISPERIDONE [Suspect]
     Indication: DEPRESSION
     Dosage: DAILY
     Route: 048
  4. SLEEPING PILL [Concomitant]
  5. RISPERIDONE [Suspect]
     Indication: ANXIETY
     Dosage: DAILY
     Route: 048
  6. ANTIPSYCHOTICS [Suspect]

REACTIONS (1)
  - DEMENTIA [None]
